FAERS Safety Report 18342394 (Version 2)
Quarter: 2022Q3

REPORT INFORMATION
  Report Type: Spontaneous
  Country: JP (occurrence: JP)
  Receive Date: 20201005
  Receipt Date: 20220714
  Transmission Date: 20221027
  Serious: Yes (Other)
  Sender: FDA-Public Use
  Company Number: JP-GSKCHJ-JP2020JPN175430AA

PATIENT

DRUGS (14)
  1. NICOTINELL [Suspect]
     Active Substance: NICOTINE
     Indication: Smoking cessation therapy
     Dosage: 1 DF, 1D
     Route: 050
     Dates: start: 20200821, end: 2020
  2. NICOTINELL [Suspect]
     Active Substance: NICOTINE
     Dosage: 1 DF, 1D
     Route: 050
     Dates: start: 20200902, end: 2020
  3. OLANZAPINE [Concomitant]
     Active Substance: OLANZAPINE
     Dosage: 20 MG, QD BEFORE BEDTIME
  4. ZOTEPINE [Concomitant]
     Active Substance: ZOTEPINE
     Dosage: 150 MG, BID AFTER DINNER AND BEFORE BEDTIME
  5. BIPERIDEN HYDROCHLORIDE [Concomitant]
     Active Substance: BIPERIDEN HYDROCHLORIDE
     Dosage: 0.5 MG, QD AFTER DINNER
  6. DIETARY SUPPLEMENT\PROBIOTICS [Concomitant]
     Active Substance: DIETARY SUPPLEMENT\PROBIOTICS
     Dosage: 36 MG, QD BEFORE BEDTIME
  7. RIVOTRIL [Concomitant]
     Active Substance: CLONAZEPAM
     Dosage: 0.5 MG IN THE EVENING AND 1 MG BEFORE BEDTIME
  8. LODOPIN (JAPAN) [Concomitant]
     Dosage: 25 MG, QD AFTER BREAKFAST
  9. ZOLPIDEM TARTRATE [Concomitant]
     Active Substance: ZOLPIDEM TARTRATE
     Dosage: 5 MG, QD BEFORE BEDTIME
  10. PANTETHINE TABLETS [Concomitant]
     Dosage: 200 MG, TID AFTER EVERY MEAL
  11. MAGNESIUM OXIDE [Concomitant]
     Active Substance: MAGNESIUM OXIDE
     Dosage: 500 MG, TID AFTER EVERY MEAL
  12. MOSAPRIDE CITRATE [Concomitant]
     Active Substance: MOSAPRIDE CITRATE
     Dosage: 5 MG, TID AFTER EVERY MEAL
  13. SHIMOTSUTO [Concomitant]
     Dosage: 2.5 G, TID AFTER EVERY MEAL
  14. TAMSULOSIN HYDROCHLORIDE [Concomitant]
     Active Substance: TAMSULOSIN HYDROCHLORIDE
     Dosage: 0.2 MG, QD?AFTER BREAKFAST

REACTIONS (4)
  - Malaise [Recovered/Resolved]
  - Immobile [Recovered/Resolved]
  - Product use issue [Unknown]
  - Therapy cessation [Unknown]

NARRATIVE: CASE EVENT DATE: 20200101
